FAERS Safety Report 4874135-3 (Version None)
Quarter: 2006Q1

REPORT INFORMATION
  Report Type: 
  Country: None (occurrence: None)
  Receive Date: 20060106
  Receipt Date: 20051028
  Transmission Date: 20060701
  Serious: Yes (Other)
  Sender: FDA-Public Use
  Company Number: US-GLAXOSMITHKLINE-A0580101A

PATIENT
  Age: 75 Year
  Sex: Female
  Weight: 71.4 kg

DRUGS (2)
  1. REQUIP [Suspect]
     Indication: RESTLESS LEGS SYNDROME
     Route: 048
  2. REQUIP [Suspect]

REACTIONS (1)
  - HALLUCINATION, VISUAL [None]
